FAERS Safety Report 5605777-5 (Version None)
Quarter: 2008Q1

REPORT INFORMATION
  Report Type: 
  Country: None (occurrence: None)
  Receive Date: 20080129
  Receipt Date: 20080117
  Transmission Date: 20080703
  Serious: Yes (Life-Threatening, Hospitalization)
  Sender: FDA-Public Use
  Company Number: DE-BAYER-200511205BVD

PATIENT
  Age: 58 Year
  Sex: Male
  Weight: 65 kg

DRUGS (8)
  1. SORAFENIB [Suspect]
     Indication: RENAL CELL CARCINOMA
     Dosage: TOTAL DAILY DOSE: 800 MG
     Route: 048
     Dates: start: 20051213, end: 20051214
  2. NOVORAPID [Concomitant]
     Route: 058
     Dates: start: 20050401
  3. MANINIL [Concomitant]
     Route: 048
     Dates: start: 20010101
  4. DURAGESIC-100 [Concomitant]
     Route: 003
     Dates: start: 20051001
  5. NOVAMINSULFON [Concomitant]
     Route: 048
     Dates: start: 20051001
  6. DEXAMETHASONE [Concomitant]
     Route: 048
     Dates: start: 20051101
  7. MOVICOL [Concomitant]
     Route: 048
     Dates: start: 20051001
  8. SEVREDOL [Concomitant]
     Route: 065
     Dates: start: 20051101

REACTIONS (3)
  - HYPERCALCAEMIA [None]
  - HYPONATRAEMIA [None]
  - SOMNOLENCE [None]
